FAERS Safety Report 6768626-8 (Version None)
Quarter: 2010Q2

REPORT INFORMATION
  Report Type: 
  Country: None (occurrence: None)
  Receive Date: 20100614
  Receipt Date: 20100602
  Transmission Date: 20101027
  Serious: Yes (Life-Threatening, Hospitalization, Other)
  Sender: FDA-Public Use
  Company Number: GB-PFIZER INC-2010043816

PATIENT
  Age: 25 Year
  Sex: Female
  Weight: 74.6 kg

DRUGS (8)
  1. PREGABALIN [Suspect]
     Dosage: 25 MG, 2X/DAY
     Route: 048
     Dates: start: 20100101, end: 20100101
  2. PREGABALIN [Suspect]
     Dosage: 50 MG, 3X/DAY
     Route: 048
     Dates: start: 20100314, end: 20100330
  3. RISPERIDONE [Concomitant]
     Indication: ABNORMAL BEHAVIOUR
     Dosage: 0.5 MG, 1X/DAY
     Route: 048
     Dates: start: 20070820
  4. RISPERIDONE [Concomitant]
     Indication: AGITATION
     Dosage: 1 MG, 2X/DAY
     Route: 048
     Dates: start: 20090501, end: 20100330
  5. VALPROATE SODIUM [Concomitant]
     Indication: AFFECT LABILITY
     Dosage: 100 MG, 2X/DAY
     Route: 048
     Dates: start: 20090111, end: 20100129
  6. VALPROATE SODIUM [Concomitant]
     Dosage: 200 MG, 2X/DAY
     Route: 048
     Dates: start: 20100129, end: 20100311
  7. VALPROATE SODIUM [Concomitant]
     Dosage: UNK
     Route: 048
     Dates: start: 20100311, end: 20100330
  8. PROCYCLIDINE [Concomitant]
     Dosage: 5 MG, 1X/DAY
     Route: 048
     Dates: start: 20090501

REACTIONS (9)
  - ABNORMAL BEHAVIOUR [None]
  - AGITATION [None]
  - BLOOD CREATINE PHOSPHOKINASE INCREASED [None]
  - FEELING ABNORMAL [None]
  - MUSCULOSKELETAL STIFFNESS [None]
  - NEUROLEPTIC MALIGNANT SYNDROME [None]
  - TREMOR [None]
  - UNRESPONSIVE TO STIMULI [None]
  - VOMITING [None]
